FAERS Safety Report 14935293 (Version 1)
Quarter: 2018Q2

REPORT INFORMATION
  Report Type: Spontaneous
  Country: US (occurrence: US)
  Receive Date: 20180524
  Receipt Date: 20180524
  Transmission Date: 20180711
  Serious: No
  Sender: FDA-Public Use
  Company Number: US-009507513-1805USA006496

PATIENT
  Age: 68 Year
  Sex: Female

DRUGS (1)
  1. KEYTRUDA [Suspect]
     Active Substance: PEMBROLIZUMAB
     Indication: MALIGNANT MELANOMA
     Dosage: EVERY 3 WEEKS
     Route: 042
     Dates: start: 201712, end: 20180501

REACTIONS (4)
  - Dry mouth [Unknown]
  - Irritability [Unknown]
  - Dysuria [Unknown]
  - Vulvovaginal dryness [Unknown]
